FAERS Safety Report 7491593-9 (Version None)
Quarter: 2011Q2

REPORT INFORMATION
  Report Type: 
  Country: None (occurrence: None)
  Receive Date: 20110519
  Receipt Date: 20110216
  Transmission Date: 20111010
  Serious: Yes (Death, Other)
  Sender: FDA-Public Use
  Company Number: JP-BAYER-201011334BYL

PATIENT
  Age: 75 Year
  Sex: Male
  Weight: 73 kg

DRUGS (4)
  1. NEXAVAR [Suspect]
     Indication: HEPATIC NEOPLASM MALIGNANT
     Route: 048
     Dates: start: 20100315, end: 20100624
  2. LASIX [Concomitant]
     Dosage: 1 DF (DAILY DOSE), , IV DRIP
     Route: 041
  3. LASIX [Concomitant]
     Dosage: 40 MG (DAILY DOSE), , ORAL
     Route: 048
  4. NEXAVAR [Suspect]
     Dosage: DAILY DOSE 400 MG/24HR

REACTIONS (2)
  - INTERSTITIAL LUNG DISEASE [None]
  - HEPATIC ENCEPHALOPATHY [None]
